FAERS Safety Report 5244341-7 (Version None)
Quarter: 2007Q1

REPORT INFORMATION
  Report Type: 
  Country: None (occurrence: None)
  Receive Date: 20070222
  Receipt Date: 20070213
  Transmission Date: 20070707
  Serious: Yes (Hospitalization)
  Sender: FDA-Public Use
  Company Number: US-ROCHE-482967

PATIENT
  Age: 16 Year
  Sex: Female

DRUGS (2)
  1. ACCUTANE [Suspect]
     Indication: ACNE
     Route: 048
     Dates: start: 20061130, end: 20070101
  2. ACCUTANE [Suspect]
     Route: 048
     Dates: start: 20070102, end: 20070213

REACTIONS (2)
  - DRY SKIN [None]
  - SUICIDE ATTEMPT [None]
